FAERS Safety Report 11156703 (Version 2)
Quarter: 2015Q3

REPORT INFORMATION
  Report Type: Spontaneous
  Country: US (occurrence: US)
  Receive Date: 20150602
  Receipt Date: 20150702
  Transmission Date: 20151125
  Serious: Yes (Hospitalization, Other)
  Sender: FDA-Public Use
  Company Number: US-GLAXOSMITHKLINE-US2015GSK074812

PATIENT
  Age: 73 Year
  Sex: Female

DRUGS (1)
  1. ADVAIR HFA [Suspect]
     Active Substance: FLUTICASONE PROPIONATE\SALMETEROL XINAFOATE
     Indication: ASTHMA
     Dosage: UNK
     Dates: start: 2010

REACTIONS (9)
  - Retinal detachment [Unknown]
  - Surgery [Unknown]
  - Cardiac failure [Unknown]
  - Myocardial infarction [Unknown]
  - Cardiac perforation [Unknown]
  - Cardiac disorder [Unknown]
  - Abdominal discomfort [Unknown]
  - Macular degeneration [Unknown]
  - Malaise [Unknown]

NARRATIVE: CASE EVENT DATE: 20150215
